FAERS Safety Report 7480881-8 (Version None)
Quarter: 2011Q2

REPORT INFORMATION
  Report Type: 
  Country: None (occurrence: None)
  Receive Date: 20110516
  Receipt Date: 20110506
  Transmission Date: 20111010
  Serious: Yes (Other)
  Sender: FDA-Public Use
  Company Number: PHHY2011US39535

PATIENT
  Sex: Female

DRUGS (2)
  1. CLOZARIL [Suspect]
  2. CHEMOTHERAPEUTICS NOS [Concomitant]

REACTIONS (3)
  - NEUTROPHIL COUNT DECREASED [None]
  - UTERINE CANCER [None]
  - WHITE BLOOD CELL COUNT DECREASED [None]
